FAERS Safety Report 4422004-5 (Version None)
Quarter: 2004Q3

REPORT INFORMATION
  Report Type: 
  Country: None (occurrence: None)
  Receive Date: 20040806
  Receipt Date: 20040806
  Transmission Date: 20050211
  Serious: Yes (Hospitalization)
  Sender: FDA-Public Use
  Company Number: None

PATIENT
  Sex: Male

DRUGS (2)
  1. ASPIRIN [Suspect]
  2. PLAVIX [Suspect]

REACTIONS (1)
  - THROMBOCYTOPENIA [None]
